FAERS Safety Report 4526865-0 (Version None)
Quarter: 2004Q4

REPORT INFORMATION
  Report Type: 
  Country: None (occurrence: None)
  Receive Date: 20041213
  Receipt Date: 20041129
  Transmission Date: 20050328
  Serious: Yes (Death, Other)
  Sender: FDA-Public Use
  Company Number: 200413268GDS

PATIENT
  Age: 56 Year
  Sex: Male
  Weight: 118 kg

DRUGS (8)
  1. AVELOX [Suspect]
     Indication: SINUSITIS
     Dosage: 400 MG, TOTAL DAILY, ORAL
     Route: 048
     Dates: start: 20041111
  2. VOLTAREN [Concomitant]
  3. LINCOCIN [Concomitant]
  4. MYPRODOL ^RIO ETHICALS^ [Concomitant]
  5. EXPIGEN [Concomitant]
  6. CLARITIN-D [Concomitant]
  7. ZESTRIL [Concomitant]
  8. SERETIDE MITE [Concomitant]

REACTIONS (4)
  - ANAPHYLACTIC REACTION [None]
  - ANAPHYLACTIC SHOCK [None]
  - RASH PRURITIC [None]
  - SHOCK [None]
